FAERS Safety Report 4344328-2 (Version None)
Quarter: 2004Q2

REPORT INFORMATION
  Report Type: 
  Country: None (occurrence: None)
  Receive Date: 20040419
  Receipt Date: 20040312
  Transmission Date: 20050107
  Serious: Yes (Other)
  Sender: FDA-Public Use
  Company Number: A-CH2004-05426

PATIENT
  Sex: Female

DRUGS (7)
  1. TRACLEER [Suspect]
     Indication: PULMONARY HYPERTENSION
     Dates: start: 20030501
  2. ZIAGEN [Suspect]
  3. NORVIR [Suspect]
  4. CRIXIVAN [Suspect]
  5. VIRAMNE (NEVIRAPINE) [Suspect]
  6. ZERIT [Suspect]
  7. ANTICOAGULANTS NOS [Concomitant]

REACTIONS (2)
  - DRUG INTERACTION [None]
  - PULMONARY HYPERTENSION [None]
